FAERS Safety Report 21757899 (Version 1)
Quarter: 2022Q4

REPORT INFORMATION
  Report Type: Spontaneous
  Country: US (occurrence: None)
  Receive Date: 20221221
  Receipt Date: 20221221
  Transmission Date: 20230112
  Serious: Yes (Other)
  Sender: FDA-Public Use
  Company Number: US-ROCHE-3214406

PATIENT
  Age: 80 Year
  Sex: Female

DRUGS (2)
  1. ACTIVASE [Suspect]
     Active Substance: ALTEPLASE
     Indication: Ischaemic stroke
     Dosage: DOSE- WEIGHT BASED, PATIENT WEIGHT UNKNOWN
     Route: 042
     Dates: start: 20221103, end: 20221103
  2. ACTIVASE [Suspect]
     Active Substance: ALTEPLASE
     Dosage: DOSE- WEIGHT BASED, PATIENT WEIGHT UNKNOWN
     Route: 040
     Dates: start: 20221103, end: 20221103

REACTIONS (5)
  - Hypersensitivity [Unknown]
  - Angioedema [Unknown]
  - Lip swelling [Unknown]
  - Flushing [Unknown]
  - Confusional state [Unknown]

NARRATIVE: CASE EVENT DATE: 20221103
